FAERS Safety Report 8239470-X (Version None)
Quarter: 2012Q1

REPORT INFORMATION
  Report Type: 
  Country: None (occurrence: None)
  Receive Date: 20120328
  Receipt Date: 20120322
  Transmission Date: 20120608
  Serious: Yes (Other)
  Sender: FDA-Public Use
  Company Number: DE-US-EMD SERONO, INC.-7079263

PATIENT
  Sex: Male
  Weight: 90 kg

DRUGS (6)
  1. VALSARTAN [Concomitant]
     Indication: HYPERTENSION
     Route: 048
  2. LEVOTHYROXINE SODIUM [Concomitant]
     Indication: HYPOTHYROIDISM
     Route: 048
  3. NOVALGIN TROPEN [Concomitant]
     Indication: PAIN
     Route: 048
  4. RESTEX [Concomitant]
     Indication: RESTLESS LEGS SYNDROME
     Route: 048
  5. REBIF [Suspect]
     Indication: MULTIPLE SCLEROSIS
     Route: 058
  6. MARCUMAR [Suspect]
     Indication: THROMBOSIS PROPHYLAXIS
     Dosage: 2-3 MILLIGRAM
     Route: 048
     Dates: start: 20100901

REACTIONS (1)
  - COAGULATION TIME ABNORMAL [None]
